FAERS Safety Report 14465570 (Version 5)
Quarter: 2018Q2

REPORT INFORMATION
  Report Type: Report from Study
  Country: CN (occurrence: CN)
  Receive Date: 20180131
  Receipt Date: 20180420
  Transmission Date: 20180711
  Serious: Yes (Hospitalization)
  Sender: FDA-Public Use
  Company Number: CN-ASTRAZENECA-2018SE11867

PATIENT
  Age: 69 Year
  Sex: Female

DRUGS (8)
  1. METFORMIN [Concomitant]
     Active Substance: METFORMIN HYDROCHLORIDE
     Indication: DIABETES MELLITUS
     Route: 048
  2. BERAPROST SODIUM [Concomitant]
     Active Substance: BERAPROST SODIUM
     Indication: VASCULAR CALCIFICATION
  3. BYETTA [Suspect]
     Active Substance: EXENATIDE
     Indication: DIABETES MELLITUS
     Route: 058
     Dates: start: 20180129
  4. LEVEMIR [Concomitant]
     Active Substance: INSULIN DETEMIR
     Dosage: AT NIGHT
  5. BYETTA [Suspect]
     Active Substance: EXENATIDE
     Indication: DIABETES MELLITUS
     Route: 058
     Dates: start: 20171130, end: 20180128
  6. AMARYL [Concomitant]
     Active Substance: GLIMEPIRIDE
     Dosage: AT NIGHT
  7. GLUCOBAY [Concomitant]
     Active Substance: ACARBOSE
     Dosage: AT NIGHT
  8. EPALRESTAT [Concomitant]
     Active Substance: EPALRESTAT
     Indication: VASCULAR CALCIFICATION

REACTIONS (9)
  - Vomiting [Unknown]
  - Diarrhoea [Unknown]
  - Protein urine present [Not Recovered/Not Resolved]
  - Discomfort [Unknown]
  - Blood glucose fluctuation [Unknown]
  - Blood glucose abnormal [Unknown]
  - Hypoglycaemia [Not Recovered/Not Resolved]
  - Blood glucose increased [Unknown]
  - Diabetes mellitus inadequate control [Not Recovered/Not Resolved]

NARRATIVE: CASE EVENT DATE: 20180411
